FAERS Safety Report 8009124-3 (Version None)
Quarter: 2011Q4

REPORT INFORMATION
  Report Type: 
  Country: None (occurrence: None)
  Receive Date: 20111227
  Receipt Date: 20111219
  Transmission Date: 20120403
  Serious: Yes (Hospitalization, Other)
  Sender: FDA-Public Use
  Company Number: US-ABBOTT-11P-163-0876096-00

PATIENT
  Sex: Male
  Weight: 106.69 kg

DRUGS (7)
  1. SKELAXIN [Concomitant]
     Indication: PRODUCT USED FOR UNKNOWN INDICATION
  2. DICLOFENAC SODIUM [Concomitant]
     Indication: BACK PAIN
     Dosage: ONE PATCH
     Route: 062
  3. ATENOLOL [Concomitant]
     Indication: PRODUCT USED FOR UNKNOWN INDICATION
  4. HUMIRA [Suspect]
     Indication: CROHN'S DISEASE
  5. PROZAC [Concomitant]
     Indication: DEPRESSION
  6. HUMIRA [Suspect]
     Indication: ANKYLOSING SPONDYLITIS
     Route: 058
     Dates: start: 20080101, end: 20111001
  7. MULTI-VITAMIN [Concomitant]
     Indication: ROUTINE HEALTH MAINTENANCE

REACTIONS (5)
  - SPEECH DISORDER [None]
  - MENTAL STATUS CHANGES [None]
  - GLIOBLASTOMA [None]
  - BACK PAIN [None]
  - CONFUSIONAL STATE [None]
